FAERS Safety Report 21887032 (Version 2)
Quarter: 2023Q1

REPORT INFORMATION
  Report Type: Spontaneous
  Country: US (occurrence: US)
  Receive Date: 20230119
  Receipt Date: 20230125
  Transmission Date: 20230418
  Serious: No
  Sender: FDA-Public Use
  Company Number: US-Calliditas-2023CAL00046

PATIENT
  Age: 49 Year
  Sex: Female

DRUGS (13)
  1. TARPEYO [Suspect]
     Active Substance: BUDESONIDE
     Indication: IgA nephropathy
     Dosage: 16 MG (4 MG CAPSULES) ONCE DAILY
     Route: 048
     Dates: start: 20220706
  2. ISONIAZID [Concomitant]
     Active Substance: ISONIAZID
  3. RIFAMPIN [Concomitant]
     Active Substance: RIFAMPIN
  4. LOSARTAN [Concomitant]
     Active Substance: LOSARTAN
  5. SPIRONOLACTONE [Concomitant]
     Active Substance: SPIRONOLACTONE
  6. ROSUVASTATIN [Concomitant]
     Active Substance: ROSUVASTATIN
  7. FISH OIL [Concomitant]
     Active Substance: FISH OIL
  8. GLUTATHIONE [Concomitant]
     Active Substance: GLUTATHIONE
  9. COLLAGEN [Concomitant]
     Active Substance: COLLAGEN
  10. VITAMINS [Concomitant]
     Active Substance: VITAMINS
  11. VITAMIN D NOS [Concomitant]
     Active Substance: VITAMIN D NOS
  12. .ALPHA.-TOCOPHEROL [Concomitant]
     Active Substance: .ALPHA.-TOCOPHEROL
  13. CALCIUM CARBONATE [Concomitant]
     Active Substance: CALCIUM CARBONATE

REACTIONS (1)
  - Muscle spasms [Not Recovered/Not Resolved]

NARRATIVE: CASE EVENT DATE: 20220901
